FAERS Safety Report 7544276-0 (Version None)
Quarter: 2011Q2

REPORT INFORMATION
  Report Type: 
  Country: None (occurrence: None)
  Receive Date: 20110613
  Receipt Date: 20070926
  Transmission Date: 20111010
  Serious: Yes (Other)
  Sender: FDA-Public Use
  Company Number: PHMT2007CA01873

PATIENT
  Sex: Female

DRUGS (6)
  1. SANDOSTATIN LAR [Suspect]
     Indication: CARCINOID TUMOUR
     Dosage: 30 MG, UNK
     Route: 030
     Dates: start: 20070712
  2. FLUORINEF [Concomitant]
  3. LEVOTHYROXINE SODIUM [Concomitant]
  4. INSULIN [Concomitant]
  5. RANITIDINE [Concomitant]
  6. HYDROCORTISONE [Concomitant]

REACTIONS (6)
  - PRESYNCOPE [None]
  - SYNCOPE [None]
  - HORMONE LEVEL ABNORMAL [None]
  - BLOOD THYROID STIMULATING HORMONE INCREASED [None]
  - THYROXINE DECREASED [None]
  - TRI-IODOTHYRONINE DECREASED [None]
